FAERS Safety Report 18490581 (Version 1)
Quarter: 2020Q4

REPORT INFORMATION
  Report Type: Spontaneous
  Country: DE (occurrence: DE)
  Receive Date: 20201111
  Receipt Date: 20201111
  Transmission Date: 20210114
  Serious: Yes (Life-Threatening, Hospitalization)
  Sender: FDA-Public Use
  Company Number: NVSC2020DE300534

PATIENT
  Age: 51 Year
  Sex: Female
  Weight: 100 kg

DRUGS (4)
  1. PROTHIPENDYL [Suspect]
     Active Substance: PROTHIPENDYL
     Indication: SUICIDE ATTEMPT
     Dosage: 800 MG SINGLE DOSE
     Route: 048
  2. LEVOMEPROMAZINE [Suspect]
     Active Substance: LEVOMEPROMAZINE
     Indication: SUICIDE ATTEMPT
     Dosage: 250 MG, SINGLE DOSE
     Route: 048
     Dates: start: 20201026, end: 20201026
  3. CANDECOR COMP [Suspect]
     Active Substance: CANDESARTAN CILEXETIL\HYDROCHLOROTHIAZIDE
     Indication: SUICIDE ATTEMPT
     Dosage: 384 MG/300 MG, SINGLE DOSE
     Route: 048
     Dates: start: 20201026, end: 20201026
  4. PARACETAMOL [Suspect]
     Active Substance: ACETAMINOPHEN
     Indication: SUICIDE ATTEMPT
     Dosage: 10000 MG, SINGLE DOSE
     Route: 048
     Dates: start: 20201026, end: 20201026

REACTIONS (3)
  - Suicide attempt [Recovering/Resolving]
  - Somnolence [Recovering/Resolving]
  - Nausea [Recovering/Resolving]

NARRATIVE: CASE EVENT DATE: 20201026
